FAERS Safety Report 17449996 (Version 1)
Quarter: 2020Q1

REPORT INFORMATION
  Report Type: Spontaneous
  Country: US (occurrence: US)
  Receive Date: 20200207
  Receipt Date: 20200207
  Transmission Date: 20200409
  Serious: No
  Sender: FDA-Public Use
  Company Number: None

PATIENT
  Age: 59 Year
  Sex: Female

DRUGS (19)
  1. FOLIC ACID. [Concomitant]
     Active Substance: FOLIC ACID
  2. FLUOXETINE [Concomitant]
     Active Substance: FLUOXETINE HYDROCHLORIDE
  3. TACROLIMUS 1MG [Suspect]
     Active Substance: TACROLIMUS
     Route: 048
     Dates: start: 20190227
  4. TRAZODONE [Concomitant]
     Active Substance: TRAZODONE HYDROCHLORIDE
  5. AMITRIPTYLIN [Concomitant]
     Active Substance: AMITRIPTYLINE
  6. BUPROPN HCL [Concomitant]
     Active Substance: BUPROPION HYDROCHLORIDE
  7. VITAMIN D [Concomitant]
     Active Substance: VITAMIN D NOS
  8. ATORVASTATIN [Concomitant]
     Active Substance: ATORVASTATIN
  9. VIMPAT [Concomitant]
     Active Substance: LACOSAMIDE
  10. NALTREXONE [Concomitant]
     Active Substance: NALTREXONE
  11. LOSARTAN POT [Concomitant]
     Active Substance: LOSARTAN POTASSIUM
  12. OXYBUTYNIN. [Suspect]
     Active Substance: OXYBUTYNIN CHLORIDE
  13. MYCOPHENOLATE 500MG TAB [Suspect]
     Active Substance: MYCOPHENOLIC ACID
     Indication: RENAL TRANSPLANT
     Route: 048
     Dates: start: 20190227
  14. NALTREXONE [Concomitant]
     Active Substance: NALTREXONE
  15. CLOPIDOGREL [Concomitant]
     Active Substance: CLOPIDOGREL BISULFATE
  16. ISOSRB MONO [Concomitant]
  17. LEVETIRACETA [Concomitant]
  18. PREDNISONE. [Concomitant]
     Active Substance: PREDNISONE
  19. DOXEPIN HCL [Concomitant]
     Active Substance: DOXEPIN HYDROCHLORIDE

REACTIONS (1)
  - Seizure [None]

NARRATIVE: CASE EVENT DATE: 20200101
